FAERS Safety Report 25984511 (Version 2)
Quarter: 2025Q4

REPORT INFORMATION
  Report Type: Spontaneous
  Country: JP (occurrence: JP)
  Receive Date: 20251031
  Receipt Date: 20251102
  Transmission Date: 20260118
  Serious: Yes (Death)
  Sender: ALEXION PHARMACEUTICALS
  Company Number: JP-ASTRAZENECA-202507JPN008131JP

PATIENT
  Age: 58 Year
  Sex: Male
  Weight: 79 kg

DRUGS (13)
  1. IMFINZI [Suspect]
     Active Substance: DURVALUMAB
     Indication: Hepatocellular carcinoma
     Dosage: 1500 MILLIGRAM, QD
     Dates: start: 20241021, end: 20241120
  2. IMFINZI [Suspect]
     Active Substance: DURVALUMAB
     Dosage: UNK
  3. IMFINZI [Suspect]
     Active Substance: DURVALUMAB
     Dosage: UNK
     Dates: start: 20241120, end: 20241120
  4. IMFINZI [Suspect]
     Active Substance: DURVALUMAB
     Dosage: UNK
  5. IMJUDO [Suspect]
     Active Substance: TREMELIMUMAB\TREMELIMUMAB-ACTL
     Indication: Hepatocellular carcinoma
     Dosage: 300 MILLIGRAM, QD
     Dates: start: 20241021, end: 20241021
  6. IMJUDO [Suspect]
     Active Substance: TREMELIMUMAB\TREMELIMUMAB-ACTL
     Dosage: UNK
     Dates: start: 20241021, end: 20241021
  7. VEMLIDY [Concomitant]
     Active Substance: TENOFOVIR ALAFENAMIDE FUMARATE
     Route: 065
  8. ZINC ACETATE [Concomitant]
     Active Substance: ZINC ACETATE
     Route: 065
  9. URSODIOL [Concomitant]
     Active Substance: URSODIOL
     Route: 065
  10. AMLODIPINE [Concomitant]
     Active Substance: AMLODIPINE BESYLATE
     Route: 065
  11. VONOPRAZAN FUMARATE [Concomitant]
     Active Substance: VONOPRAZAN FUMARATE
     Route: 065
  12. BENDAMUSTINE HYDROCHLORIDE [Concomitant]
     Active Substance: BENDAMUSTINE HYDROCHLORIDE
     Route: 065
  13. Bcaa [Concomitant]
     Route: 065

REACTIONS (1)
  - Immune-mediated myositis [Fatal]

NARRATIVE: CASE EVENT DATE: 20241120
